FAERS Safety Report 18579746 (Version 1)
Quarter: 2020Q4

REPORT INFORMATION
  Report Type: Spontaneous
  Country: US (occurrence: US)
  Receive Date: 20201204
  Receipt Date: 20201204
  Transmission Date: 20210114
  Serious: Yes (Other)
  Sender: FDA-Public Use
  Company Number: US-BIOVITRUM-2020US6921

PATIENT
  Age: 15 Year
  Sex: Female

DRUGS (5)
  1. FLUDARABINE [Concomitant]
     Active Substance: FLUDARABINE PHOSPHATE
     Indication: MYELODYSPLASTIC SYNDROME
     Route: 042
  2. BUSULFAN. [Concomitant]
     Active Substance: BUSULFAN
     Indication: MYELODYSPLASTIC SYNDROME
     Dosage: FOR16 DAYS BUSULFAN 0.8 MG/MG.
     Route: 042
  3. ANAKINRA [Suspect]
     Active Substance: ANAKINRA
     Indication: HAEMOPHAGOCYTIC LYMPHOHISTIOCYTOSIS
     Route: 065
  4. CYCLOPHOSPHAMIDE. [Concomitant]
     Active Substance: CYCLOPHOSPHAMIDE
     Indication: MYELODYSPLASTIC SYNDROME
     Route: 042
  5. ANAKINRA [Suspect]
     Active Substance: ANAKINRA
     Indication: HAEMOPHAGOCYTIC LYMPHOHISTIOCYTOSIS

REACTIONS (4)
  - Off label use [Unknown]
  - Acute respiratory distress syndrome [Unknown]
  - Acute kidney injury [Unknown]
  - Shock [Unknown]
